FAERS Safety Report 13945075 (Version 1)
Quarter: 2017Q3

REPORT INFORMATION
  Report Type: Report from Study
  Country: US (occurrence: US)
  Receive Date: 20170907
  Receipt Date: 20170907
  Transmission Date: 20171128
  Serious: Yes (Hospitalization, Other)
  Sender: FDA-Public Use
  Company Number: US-GILEAD-2017-0292237

PATIENT
  Age: 80 Year
  Sex: Female

DRUGS (2)
  1. ELIQUIS [Concomitant]
     Active Substance: APIXABAN
  2. AMBRISENTAN [Suspect]
     Active Substance: AMBRISENTAN
     Indication: PRODUCT USED FOR UNKNOWN INDICATION
     Dosage: 5 MG, QD
     Route: 065

REACTIONS (6)
  - Atrial fibrillation [Unknown]
  - Hypophagia [Unknown]
  - Mental status changes [Unknown]
  - Gait inability [Unknown]
  - Transient ischaemic attack [Unknown]
  - Aggression [Unknown]

NARRATIVE: CASE EVENT DATE: 20170831
